FAERS Safety Report 18515961 (Version 1)
Quarter: 2020Q4

REPORT INFORMATION
  Report Type: Spontaneous
  Country: US (occurrence: US)
  Receive Date: 20201117
  Receipt Date: 20201117
  Transmission Date: 20210114
  Serious: No
  Sender: FDA-Public Use
  Company Number: None

PATIENT
  Age: 63 Year
  Sex: Male

DRUGS (16)
  1. CLARITIN [Concomitant]
     Active Substance: LORATADINE
  2. FLUTICASONE PROPIONATE. [Concomitant]
     Active Substance: FLUTICASONE PROPIONATE
  3. ZOSTAVAX [Concomitant]
     Active Substance: VARICELLA-ZOSTER VIRUS STRAIN OKA/MERCK LIVE ANTIGEN
  4. DICLOFENAC POTASSIUM. [Concomitant]
     Active Substance: DICLOFENAC POTASSIUM
  5. EMLA [Concomitant]
     Active Substance: LIDOCAINE\PRILOCAINE
  6. NOVOLOG [Concomitant]
     Active Substance: INSULIN ASPART
  7. GABAPENTIN. [Concomitant]
     Active Substance: GABAPENTIN
  8. LORATADINE. [Concomitant]
     Active Substance: LORATADINE
  9. OXYCODONE HYDROCHLORIDE. [Concomitant]
     Active Substance: OXYCODONE HYDROCHLORIDE
  10. PROMACTA [Suspect]
     Active Substance: ELTROMBOPAG OLAMINE
     Indication: THROMBOCYTOPENIA
     Route: 048
     Dates: start: 20170727
  11. DULOXETINE HCL [Concomitant]
     Active Substance: DULOXETINE HYDROCHLORIDE
  12. B-D INSULIN SYRINGE ULTRA [Concomitant]
  13. ELIQUIS [Concomitant]
     Active Substance: APIXABAN
  14. LISINOPRIL. [Concomitant]
     Active Substance: LISINOPRIL
  15. HYDRALAZINE HCL [Concomitant]
     Active Substance: HYDRALAZINE HYDROCHLORIDE
  16. TRADJENTA [Concomitant]
     Active Substance: LINAGLIPTIN

REACTIONS (1)
  - Basal cell carcinoma [None]
